FAERS Safety Report 6646741-7 (Version None)
Quarter: 2010Q1

REPORT INFORMATION
  Report Type: 
  Country: None (occurrence: None)
  Receive Date: 20100323
  Receipt Date: 20100312
  Transmission Date: 20100710
  Serious: Yes (Hospitalization)
  Sender: FDA-Public Use
  Company Number: NL-AMGEN-KDC400034

PATIENT
  Sex: Female

DRUGS (14)
  1. PEGFILGRASTIM [Suspect]
     Indication: NEOPLASM
     Route: 058
     Dates: start: 20100304
  2. RITUXIMAB [Suspect]
     Route: 042
     Dates: start: 20100303
  3. PREDNISONE TAB [Suspect]
     Route: 048
     Dates: start: 20100303
  4. CYCLOPHOSPHAMIDE [Suspect]
     Route: 042
     Dates: start: 20100303
  5. DOXORUBICIN HCL [Suspect]
     Route: 042
     Dates: start: 20100303
  6. VINCRISTINE [Suspect]
     Route: 042
     Dates: start: 20100303
  7. NEXIUM [Concomitant]
     Dates: start: 20100304
  8. VERAPAMIL [Concomitant]
     Dates: start: 20100304
  9. ATACAND [Concomitant]
     Dates: start: 20100304
  10. ELTROXIN [Concomitant]
     Dates: start: 20100304
  11. CETIRIZINE [Concomitant]
     Dates: start: 20100304
  12. MAGNESIA [Concomitant]
     Dates: start: 20100304
  13. BISACODYL [Concomitant]
     Dates: start: 20100304
  14. SODIUM PICOSULFATE [Concomitant]
     Dates: start: 20100304

REACTIONS (1)
  - GASTRITIS [None]
